FAERS Safety Report 25973268 (Version 1)
Quarter: 2025Q4

REPORT INFORMATION
  Report Type: Spontaneous
  Country: US (occurrence: US)
  Receive Date: 20251029
  Receipt Date: 20251029
  Transmission Date: 20260117
  Serious: No
  Sender: BAUSCH AND LOMB
  Company Number: US-BAUSCHBL-2025BNL030717

PATIENT
  Age: 77 Year
  Sex: Female

DRUGS (1)
  1. TOBRAMYCIN [Suspect]
     Active Substance: TOBRAMYCIN
     Indication: Conjunctivitis
     Route: 047

REACTIONS (2)
  - Eye irritation [Unknown]
  - Condition aggravated [Unknown]
